FAERS Safety Report 18855031 (Version 3)
Quarter: 2024Q3

REPORT INFORMATION
  Report Type: Report from Study
  Country: US (occurrence: US)
  Receive Date: 20210206
  Receipt Date: 20240813
  Transmission Date: 20241016
  Serious: Yes (Other)
  Sender: ROCHE
  Company Number: US-ROCHE-2765019

PATIENT
  Age: 64 Year
  Sex: Female
  Weight: 68 kg

DRUGS (19)
  1. XOLAIR [Suspect]
     Active Substance: OMALIZUMAB
     Indication: Asthmatic crisis
     Dosage: PREFILLED SYRINGE 150 MG/ML
     Route: 058
     Dates: start: 20190723
  2. XOLAIR [Suspect]
     Active Substance: OMALIZUMAB
     Route: 058
  3. XOLAIR [Suspect]
     Active Substance: OMALIZUMAB
     Route: 058
  4. TYLENOL EXTRA STRENGTH [Concomitant]
     Active Substance: ACETAMINOPHEN
  5. PROVENTIL HFA [Concomitant]
     Active Substance: ALBUTEROL SULFATE
  6. PROAIR HFA [Concomitant]
     Active Substance: ALBUTEROL SULFATE
  7. NORVASC [Concomitant]
     Active Substance: AMLODIPINE BESYLATE
  8. ASTELIN [Concomitant]
     Active Substance: AZELASTINE HYDROCHLORIDE
  9. ZITHROMAX [Concomitant]
     Active Substance: AZITHROMYCIN DIHYDRATE
  10. TESSALON [Concomitant]
     Active Substance: BENZONATATE
  11. SYMBICORT [Concomitant]
     Active Substance: BUDESONIDE\FORMOTEROL FUMARATE DIHYDRATE
  12. OSCAL D [CALCIUM CARBONATE;COLECALCIFEROL] [Concomitant]
  13. EPIPEN [Concomitant]
     Active Substance: EPINEPHRINE
  14. FLONASE [Concomitant]
     Active Substance: FLUTICASONE PROPIONATE
  15. LIDODERM [Concomitant]
     Active Substance: LIDOCAINE
  16. LEVOCETIRIZINE DIHYDROCHLORIDE [Concomitant]
     Active Substance: LEVOCETIRIZINE DIHYDROCHLORIDE
  17. SINGULAIR [Concomitant]
     Active Substance: MONTELUKAST SODIUM
  18. DELTASONE [Concomitant]
     Active Substance: PREDNISONE
  19. SPIRIVA RESPIMAT [Concomitant]
     Active Substance: TIOTROPIUM BROMIDE

REACTIONS (5)
  - Pneumonia [Not Recovered/Not Resolved]
  - Pneumonia [Unknown]
  - Dyspnoea exertional [Unknown]
  - Bronchiectasis [Unknown]
  - Off label use [Unknown]
